FAERS Safety Report 6210919-7 (Version None)
Quarter: 2009Q2

REPORT INFORMATION
  Report Type: 
  Country: None (occurrence: None)
  Receive Date: 20090601
  Receipt Date: 20090522
  Transmission Date: 20091009
  Serious: Yes (Hospitalization, Other)
  Sender: FDA-Public Use
  Company Number: BR-ABBOTT-09P-020-0573896-00

PATIENT
  Age: 76 Year
  Sex: Female
  Weight: 66 kg

DRUGS (8)
  1. HUMIRA [Suspect]
     Indication: RHEUMATOID ARTHRITIS
     Route: 058
     Dates: start: 20080101
  2. HUMIRA [Suspect]
     Indication: CROHN'S DISEASE
  3. HUMIRA [Suspect]
     Indication: PROCTOCOLITIS
  4. ATENOLOL [Concomitant]
     Indication: CARDIOVASCULAR EVENT PROPHYLAXIS
     Route: 048
  5. PANTOPRAZOLE SODIUM [Concomitant]
     Indication: PROPHYLAXIS AGAINST GASTROINTESTINAL ULCER
     Route: 048
  6. DEFLAZACORT [Concomitant]
     Indication: PROCTOCOLITIS
     Route: 048
  7. ATORVASTATIN CALCIUM [Concomitant]
     Indication: BLOOD CHOLESTEROL ABNORMAL
     Route: 048
  8. MESALAZINE [Concomitant]
     Indication: CROHN'S DISEASE
     Route: 048

REACTIONS (6)
  - ABDOMINAL PAIN [None]
  - BLISTER [None]
  - CARDIAC DISORDER [None]
  - INFECTION [None]
  - PYREXIA [None]
  - TREMOR [None]
